FAERS Safety Report 10068565 (Version 1)
Quarter: 2014Q2

REPORT INFORMATION
  Report Type: Spontaneous
  Country: US (occurrence: US)
  Receive Date: 20140409
  Receipt Date: 20140409
  Transmission Date: 20141212
  Serious: No
  Sender: FDA-Public Use
  Company Number: US-PFIZER INC-2014096488

PATIENT
  Sex: Female

DRUGS (2)
  1. GENOTROPIN [Suspect]
     Dosage: UNK
     Route: 050
  2. TESTOSTERONE [Suspect]
     Dosage: UNK
     Route: 050

REACTIONS (2)
  - Exposure via partner [Unknown]
  - Blood testosterone increased [Unknown]
